FAERS Safety Report 5281101-5 (Version None)
Quarter: 2007Q1

REPORT INFORMATION
  Report Type: 
  Country: None (occurrence: None)
  Receive Date: 20070323
  Receipt Date: 20070316
  Transmission Date: 20070707
  Serious: No
  Sender: FDA-Public Use
  Company Number: 2007-154710-NL

PATIENT

DRUGS (4)
  1. VECURONIUM BROMIDE [Suspect]
     Indication: MUSCLE RELAXANT THERAPY
     Dosage: 5 MG ONCE INTRAVENOUS (NOS)
     Route: 042
     Dates: start: 20050913, end: 20050913
  2. PROPOFOL [Suspect]
     Indication: ANALGESIC EFFECT
     Dosage: INTRAVENOUS DRIP
     Route: 041
     Dates: start: 20050913, end: 20050913
  3. FENTANYL [Suspect]
     Indication: ANALGESIC EFFECT
     Dosage: 100 UG ONCE INTRAVENOUS (NOS)
     Route: 042
     Dates: start: 20050913, end: 20050913
  4. ROPIVACAINE HYDROCHLORIDE [Suspect]
     Indication: NERVE BLOCK
     Dosage: 6 ML ONCE EPIDURAL
     Route: 008
     Dates: start: 20050913, end: 20050913

REACTIONS (6)
  - BRADYCARDIA FOETAL [None]
  - COMPLICATION OF PREGNANCY [None]
  - DRUG EXPOSURE DURING PREGNANCY [None]
  - PROCEDURAL COMPLICATION [None]
  - TOCOLYSIS [None]
  - UTERINE CONTRACTIONS DURING PREGNANCY [None]
